FAERS Safety Report 22723425 (Version 5)
Quarter: 2024Q1

REPORT INFORMATION
  Report Type: Spontaneous
  Country: US (occurrence: US)
  Receive Date: 20230719
  Receipt Date: 20240308
  Transmission Date: 20240410
  Serious: No
  Sender: FDA-Public Use
  Company Number: US-SA-SAC20230718000672

PATIENT
  Age: 74 Year
  Sex: Female

DRUGS (3)
  1. DUPIXENT [Suspect]
     Active Substance: DUPILUMAB
     Indication: Dermatitis atopic
     Dosage: 600 MG, 1X
     Route: 058
     Dates: start: 20230711, end: 20230711
  2. DUPIXENT [Suspect]
     Active Substance: DUPILUMAB
     Indication: Eczema
     Dosage: 300 MG, QOW
     Route: 058
     Dates: start: 202307
  3. DUPIXENT [Suspect]
     Active Substance: DUPILUMAB
     Indication: Dermatitis allergic

REACTIONS (22)
  - Asthenopia [Unknown]
  - Paraesthesia oral [Unknown]
  - Hypertension [Unknown]
  - Somnolence [Recovered/Resolved]
  - Rhinorrhoea [Unknown]
  - Eye discharge [Unknown]
  - Scratch [Recovered/Resolved]
  - Fatigue [Unknown]
  - Pain [Unknown]
  - Headache [Unknown]
  - Rhinorrhoea [Unknown]
  - Nasal pruritus [Unknown]
  - Dizziness [Unknown]
  - Hypersomnia [Unknown]
  - Fatigue [Unknown]
  - Somnolence [Unknown]
  - Nasal congestion [Unknown]
  - Dizziness [Unknown]
  - Pruritus [Unknown]
  - Pruritus [Unknown]
  - Injection site pruritus [Unknown]
  - Product after taste [Unknown]

NARRATIVE: CASE EVENT DATE: 20230101
